FAERS Safety Report 19065063 (Version 1)
Quarter: 2021Q1

REPORT INFORMATION
  Report Type: Report from Study
  Country: None (occurrence: US)
  Receive Date: 20210327
  Receipt Date: 20210327
  Transmission Date: 20210420
  Serious: Yes (Other)
  Sender: FDA-Public Use
  Company Number: US-ABBVIE-20K-163-3535634-00

PATIENT
  Age: 62 Year
  Sex: Female

DRUGS (2)
  1. HUMIRA [Suspect]
     Active Substance: ADALIMUMAB
     Indication: RHEUMATOID ARTHRITIS
     Route: 058
     Dates: end: 2020
  2. HUMIRA [Suspect]
     Active Substance: ADALIMUMAB
     Route: 058
     Dates: start: 20201107

REACTIONS (8)
  - Inflammatory marker increased [Recovered/Resolved]
  - Respiratory disorder [Unknown]
  - Polyp [Not Recovered/Not Resolved]
  - Illness [Not Recovered/Not Resolved]
  - Coma [Recovered/Resolved]
  - Increased bronchial secretion [Not Recovered/Not Resolved]
  - Lung disorder [Unknown]
  - Oesophageal carcinoma [Not Recovered/Not Resolved]

NARRATIVE: CASE EVENT DATE: 2020
